FAERS Safety Report 5363708-X (Version None)
Quarter: 2007Q2

REPORT INFORMATION
  Report Type: 
  Country: None (occurrence: None)
  Receive Date: 20070618
  Receipt Date: 20070618
  Transmission Date: 20071010
  Serious: Yes (Other)
  Sender: FDA-Public Use
  Company Number: None

PATIENT
  Age: 39 Year
  Sex: Male
  Weight: 72.5755 kg

DRUGS (2)
  1. PAXIL [Suspect]
     Indication: ANXIETY
     Dosage: 37.5  1 X DAILY  PO
     Route: 048
     Dates: start: 20000118, end: 20070613
  2. PAXIL [Suspect]
     Indication: DEPRESSION
     Dosage: 37.5  1 X DAILY  PO
     Route: 048
     Dates: start: 20000118, end: 20070613

REACTIONS (4)
  - DRUG WITHDRAWAL SYNDROME [None]
  - RESPIRATORY DISORDER [None]
  - TREATMENT NONCOMPLIANCE [None]
  - VISUAL DISTURBANCE [None]
